FAERS Safety Report 9331741 (Version 1)
Quarter: 2013Q2

REPORT INFORMATION
  Report Type: Spontaneous
  Country: FR (occurrence: FR)
  Receive Date: 20130605
  Receipt Date: 20130605
  Transmission Date: 20140414
  Serious: Yes (Other)
  Sender: FDA-Public Use
  Company Number: FR-ELI_LILLY_AND_COMPANY-FR201305009234

PATIENT
  Age: 39 Year
  Sex: Male
  Weight: 59 kg

DRUGS (2)
  1. ALIMTA [Suspect]
     Indication: LUNG ADENOCARCINOMA
     Dosage: 865 MG, UNKNOWN
     Route: 042
     Dates: start: 201106, end: 20130314
  2. CARBOPLATIN [Concomitant]
     Dosage: 500 MG, UNKNOWN

REACTIONS (9)
  - Malignant neoplasm progression [Unknown]
  - Presyncope [Recovered/Resolved]
  - Paraesthesia oral [Recovered/Resolved]
  - Flushing [Recovered/Resolved]
  - Hyperhidrosis [Recovered/Resolved]
  - Vision blurred [Recovered/Resolved]
  - Blood pressure abnormal [Recovered/Resolved]
  - Off label use [Unknown]
  - Treatment noncompliance [Unknown]
